FAERS Safety Report 9997503 (Version 1)
Quarter: 2014Q1

REPORT INFORMATION
  Report Type: Spontaneous
  Country: US (occurrence: US)
  Receive Date: 20140311
  Receipt Date: 20140311
  Transmission Date: 20141002
  Serious: No
  Sender: FDA-Public Use
  Company Number: US-GLAXOSMITHKLINE-A1051419A

PATIENT
  Age: 64 Year
  Sex: Male

DRUGS (2)
  1. KROGER FRUIT WAVE NICOTINE GUM, 4MG [Suspect]
     Indication: EX-TOBACCO USER
  2. VITAMINS [Concomitant]

REACTIONS (3)
  - Alopecia [Not Recovered/Not Resolved]
  - Alopecia [Not Recovered/Not Resolved]
  - Nicotine dependence [Not Recovered/Not Resolved]
